FAERS Safety Report 10224100 (Version 2)
Quarter: 2014Q2

REPORT INFORMATION
  Report Type: Spontaneous
  Country: CA (occurrence: CA)
  Receive Date: 20140609
  Receipt Date: 20140609
  Transmission Date: 20141212
  Serious: Yes (Other)
  Sender: FDA-Public Use
  Company Number: CHPA2014CA007498

PATIENT
  Sex: Female

DRUGS (10)
  1. EXCEDRIN MIGRAINE [Suspect]
     Indication: OSTEOARTHRITIS
     Dosage: 2 DF, PRN
     Route: 048
     Dates: start: 2007
  2. EXCEDRIN MIGRAINE [Suspect]
     Indication: FIBROMYALGIA
  3. EXCEDRIN MIGRAINE [Suspect]
     Indication: PSORIATIC ARTHROPATHY
  4. EXCEDRIN MIGRAINE [Suspect]
     Indication: OFF LABEL USE
  5. EXCEDRIN EXTRA STRENGTH [Suspect]
     Indication: OSTEOARTHRITIS
     Dosage: 2 DF, Q6H AS NEEDED
     Route: 048
  6. EXCEDRIN EXTRA STRENGTH [Suspect]
     Indication: FIBROMYALGIA
  7. EXCEDRIN EXTRA STRENGTH [Suspect]
     Indication: OFF LABEL USE
  8. EXCEDRIN TENSION HEADACHE [Suspect]
     Indication: OSTEOARTHRITIS
     Dosage: 2 DF, Q8H AS NEEDED
     Route: 048
     Dates: start: 2008
  9. EXCEDRIN TENSION HEADACHE [Suspect]
     Indication: FIBROMYALGIA
  10. EXCEDRIN TENSION HEADACHE [Suspect]
     Indication: OFF LABEL USE

REACTIONS (2)
  - Psoriatic arthropathy [Recovering/Resolving]
  - Therapeutic response changed [Unknown]
